FAERS Safety Report 7752591-0 (Version None)
Quarter: 2011Q3

REPORT INFORMATION
  Report Type: 
  Country: None (occurrence: None)
  Receive Date: 20110915
  Receipt Date: 20110911
  Transmission Date: 20111222
  Serious: No
  Sender: FDA-Public Use
  Company Number: US-TEVA-300515USA

PATIENT
  Sex: Female
  Weight: 58.112 kg

DRUGS (7)
  1. PLAN B ONE-STEP [Suspect]
     Indication: POST COITAL CONTRACEPTION
     Dosage: 1.5 MILLIGRAM;
     Route: 048
     Dates: start: 20110905, end: 20110905
  2. VITAMIN E [Concomitant]
     Indication: VITAMIN SUPPLEMENTATION
     Dates: start: 20100101
  3. M.V.I. [Concomitant]
     Indication: VITAMIN SUPPLEMENTATION
  4. GLUTAMINE [Concomitant]
     Indication: SUPPLEMENTATION THERAPY
     Dates: start: 20100101
  5. VITAMIN B-12 [Concomitant]
     Indication: VITAMIN SUPPLEMENTATION
     Dates: start: 20100101
  6. BETA-ALANINE [Concomitant]
     Indication: SUPPLEMENTATION THERAPY
     Dates: start: 20100101
  7. VITAMIN B6 [Concomitant]
     Indication: VITAMIN SUPPLEMENTATION
     Dates: start: 20100101

REACTIONS (1)
  - MENSTRUATION IRREGULAR [None]
